FAERS Safety Report 19128131 (Version 1)
Quarter: 2021Q2

REPORT INFORMATION
  Report Type: Spontaneous
  Country: US (occurrence: US)
  Receive Date: 20210413
  Receipt Date: 20210413
  Transmission Date: 20210717
  Serious: Yes (Death)
  Sender: FDA-Public Use
  Company Number: None

PATIENT
  Age: 72 Year
  Sex: Female

DRUGS (2)
  1. FORTEO [Suspect]
     Active Substance: TERIPARATIDE
     Indication: PRODUCT USED FOR UNKNOWN INDICATION
     Route: 058
     Dates: start: 20200811, end: 20210411
  2. IMATINIB MES [Suspect]
     Active Substance: IMATINIB MESYLATE
     Indication: PLASMA CELL LEUKAEMIA
     Route: 048
     Dates: start: 20180203, end: 20210411

REACTIONS (1)
  - Death [None]

NARRATIVE: CASE EVENT DATE: 20210411
